FAERS Safety Report 17968650 (Version 1)
Quarter: 2020Q3

REPORT INFORMATION
  Report Type: Spontaneous
  Country: CN (occurrence: CN)
  Receive Date: 20200701
  Receipt Date: 20200701
  Transmission Date: 20201103
  Serious: Yes (Hospitalization)
  Sender: FDA-Public Use
  Company Number: CN-PFIZER INC-2020252427

PATIENT
  Age: 66 Year
  Sex: Male
  Weight: 60 kg

DRUGS (2)
  1. GANSULIN 30R [Concomitant]
     Indication: DIABETES MELLITUS
     Dosage: 19.000 IU, 2X/DAY
     Route: 058
     Dates: start: 20200420, end: 20200620
  2. LIPITOR [Suspect]
     Active Substance: ATORVASTATIN CALCIUM
     Indication: HYPERCHOLESTEROLAEMIA
     Dosage: 10 MG, 1X/DAY
     Route: 048
     Dates: start: 20200601, end: 20200620

REACTIONS (5)
  - Jaundice [Recovering/Resolving]
  - Transaminases increased [Unknown]
  - Chromaturia [Unknown]
  - Bilirubin urine present [Unknown]
  - Blood bilirubin increased [Unknown]

NARRATIVE: CASE EVENT DATE: 20200620
